FAERS Safety Report 8539379-8 (Version None)
Quarter: 2012Q3

REPORT INFORMATION
  Report Type: 
  Country: None (occurrence: None)
  Receive Date: 20120726
  Receipt Date: 20120221
  Transmission Date: 20120928
  Serious: No
  Sender: FDA-Public Use
  Company Number: US-ASTRAZENECA-2011SE43543

PATIENT
  Age: 44 Year
  Sex: Female
  Weight: 82.6 kg

DRUGS (4)
  1. WELLBUTRIN [Concomitant]
  2. LEVOTHYROXINE SODIUM [Concomitant]
  3. SEROQUEL [Suspect]
     Indication: DEPRESSION
     Route: 048
     Dates: start: 20101101
  4. ZOLOFT [Concomitant]

REACTIONS (4)
  - BLOOD CHOLESTEROL INCREASED [None]
  - WEIGHT INCREASED [None]
  - HUNGER [None]
  - BLOOD TRIGLYCERIDES INCREASED [None]
